FAERS Safety Report 19030275 (Version 1)
Quarter: 2021Q1

REPORT INFORMATION
  Report Type: Spontaneous
  Country: TR (occurrence: TR)
  Receive Date: 20210319
  Receipt Date: 20210319
  Transmission Date: 20210420
  Serious: Yes (Other)
  Sender: FDA-Public Use
  Company Number: TR-SUN PHARMACEUTICAL INDUSTRIES LTD-2021R1-286539

PATIENT
  Age: 43 Year
  Sex: Male

DRUGS (3)
  1. SERTRALINE [Suspect]
     Active Substance: SERTRALINE HYDROCHLORIDE
     Indication: OBSESSIVE-COMPULSIVE DISORDER
     Dosage: 50 MG/DAY
     Route: 065
  2. QUETIAPINE SUN LP 300 MG, COMPRIM? ? LIB?RATION PROLONG?E [Suspect]
     Active Substance: QUETIAPINE
     Indication: IRRITABILITY
  3. QUETIAPINE SUN LP 300 MG, COMPRIM? ? LIB?RATION PROLONG?E [Suspect]
     Active Substance: QUETIAPINE
     Indication: INSOMNIA
     Dosage: 50 MG/DAY
     Route: 065

REACTIONS (2)
  - Memory impairment [Unknown]
  - Dementia [Unknown]
